FAERS Safety Report 9410116 (Version 1)
Quarter: 2013Q3

REPORT INFORMATION
  Report Type: Spontaneous
  Country: US (occurrence: US)
  Receive Date: 20130719
  Receipt Date: 20130719
  Transmission Date: 20140515
  Serious: Yes (Hospitalization, Other)
  Sender: FDA-Public Use
  Company Number: US-BAYER-2013-086463

PATIENT
  Age: 23 Year
  Sex: Female

DRUGS (3)
  1. YASMIN [Suspect]
  2. CYCLOBENZAPRINE [Concomitant]
  3. ROCEPHIN [Concomitant]

REACTIONS (2)
  - Deep vein thrombosis [Recovered/Resolved]
  - Cholelithiasis [None]
